FAERS Safety Report 25175578 (Version 1)
Quarter: 2025Q2

REPORT INFORMATION
  Report Type: Spontaneous
  Country: FR (occurrence: FR)
  Receive Date: 20250408
  Receipt Date: 20250408
  Transmission Date: 20250716
  Serious: Yes (Hospitalization)
  Sender: RIGEL PHARMACEUTICALS
  Company Number: None

PATIENT
  Age: 18 Year
  Sex: Male
  Weight: 73 kg

DRUGS (2)
  1. FOSTAMATINIB DISODIUM [Suspect]
     Active Substance: FOSTAMATINIB DISODIUM
     Indication: Immune thrombocytopenia
     Dosage: 1 TABLET OF 150 MG TWICE A DAY
     Dates: start: 20240409, end: 20250129
  2. CELLCEPT [Suspect]
     Active Substance: MYCOPHENOLATE MOFETIL
     Indication: Immune thrombocytopenia
     Dosage: 1 TABLET OF 500 MG TWICE A DAY
     Dates: start: 20241120, end: 20250129

REACTIONS (1)
  - Agranulocytosis [Recovered/Resolved]

NARRATIVE: CASE EVENT DATE: 20250129
